FAERS Safety Report 7815534-7 (Version None)
Quarter: 2011Q4

REPORT INFORMATION
  Report Type: 
  Country: None (occurrence: None)
  Receive Date: 20111012
  Receipt Date: 20110930
  Transmission Date: 20120403
  Serious: Yes (Other)
  Sender: FDA-Public Use
  Company Number: DSM-2011-00869

PATIENT
  Age: 45 Year
  Sex: Male
  Weight: 86 kg

DRUGS (1)
  1. AMLODIPINE BESYLATE AND OLMESARTAN MEDOXOMIL [Suspect]
     Indication: HYPERTENSION
     Dosage: 20/5 MG (1 IN 1 D), ORAL
     Route: 048
     Dates: start: 20101001, end: 20111001

REACTIONS (2)
  - BLEEDING TIME PROLONGED [None]
  - THROMBOCYTOPENIA [None]
